FAERS Safety Report 16355881 (Version 1)
Quarter: 2019Q2

REPORT INFORMATION
  Report Type: Spontaneous
  Country: US (occurrence: US)
  Receive Date: 20190526
  Receipt Date: 20190526
  Transmission Date: 20190711
  Serious: No
  Sender: FDA-Public Use
  Company Number: US-009507513-1905USA008198

PATIENT
  Sex: Female
  Weight: 69.4 kg

DRUGS (1)
  1. MAXALT [Suspect]
     Active Substance: RIZATRIPTAN BENZOATE

REACTIONS (4)
  - Oral mucosal eruption [Unknown]
  - Pharyngeal swelling [Unknown]
  - Urticaria [Unknown]
  - Lip swelling [Unknown]
